FAERS Safety Report 12881884 (Version 4)
Quarter: 2018Q1

REPORT INFORMATION
  Report Type: Report from Study
  Country: US (occurrence: US)
  Receive Date: 20161025
  Receipt Date: 20180105
  Transmission Date: 20180508
  Serious: No
  Sender: FDA-Public Use
  Company Number: US-AMGEN-USASL2016144624

PATIENT
  Age: 77 Year
  Sex: Female

DRUGS (1)
  1. REPATHA [Suspect]
     Active Substance: EVOLOCUMAB
     Indication: BLOOD CHOLESTEROL ABNORMAL
     Dosage: 140 MG, Q2WK
     Route: 065

REACTIONS (7)
  - Influenza like illness [Unknown]
  - Back pain [Unknown]
  - Sneezing [Unknown]
  - Rhinorrhoea [Unknown]
  - Night sweats [Unknown]
  - Injection site bruising [Unknown]
  - Fatigue [Unknown]
